FAERS Safety Report 6708836-9 (Version None)
Quarter: 2010Q2

REPORT INFORMATION
  Report Type: 
  Country: None (occurrence: None)
  Receive Date: 20100503
  Receipt Date: 20100503
  Transmission Date: 20101027
  Serious: Yes (Life-Threatening, Hospitalization)
  Sender: FDA-Public Use
  Company Number: None

PATIENT
  Age: 35 Year
  Sex: Female
  Weight: 71.21 kg

DRUGS (3)
  1. YAZ [Suspect]
     Indication: ORAL CONTRACEPTION
     Dosage: 1 TABLET ONCE DAILY PO
     Route: 048
  2. LEXAPRO [Concomitant]
  3. VITAMIN AND MINERAL PRENATAL SUPPLEMENT W/ FOLIC ACID CAP [Concomitant]

REACTIONS (4)
  - ABDOMINAL PAIN [None]
  - DIZZINESS [None]
  - MUSCULOSKELETAL PAIN [None]
  - PULMONARY EMBOLISM [None]
